FAERS Safety Report 7481177-0 (Version None)
Quarter: 2011Q2

REPORT INFORMATION
  Report Type: 
  Country: None (occurrence: None)
  Receive Date: 20110516
  Receipt Date: 20110511
  Transmission Date: 20111010
  Serious: Yes (Death, Hospitalization)
  Sender: FDA-Public Use
  Company Number: PHHY2010MX52264

PATIENT
  Sex: Female

DRUGS (3)
  1. ZELMAC [Suspect]
     Indication: IRRITABLE BOWEL SYNDROME
     Dosage: 3 DF, QD (3 TABLETS PER DAY)
     Route: 048
     Dates: start: 20071101, end: 20090927
  2. ANTISPASMODICS [Concomitant]
  3. ANTIDEPRESSANTS [Concomitant]

REACTIONS (2)
  - PNEUMONIA [None]
  - INFLUENZA [None]
